FAERS Safety Report 7874449-9 (Version None)
Quarter: 2011Q4

REPORT INFORMATION
  Report Type: 
  Country: None (occurrence: None)
  Receive Date: 20111030
  Receipt Date: 20110520
  Transmission Date: 20120403
  Serious: No
  Sender: FDA-Public Use
  Company Number: US-AMGEN-USASP2011026315

PATIENT
  Sex: Female
  Weight: 108.84 kg

DRUGS (10)
  1. KLOR-CON [Concomitant]
     Dosage: 10 MEQ, UNK
  2. ASCORBIC ACID [Concomitant]
     Dosage: 100 MG, UNK
  3. ENBREL [Suspect]
     Indication: PRODUCT USED FOR UNKNOWN INDICATION
     Dosage: 50 MG, 2 TIMES/WK
  4. ASPIRIN [Concomitant]
     Dosage: 81 MG, UNK
  5. AMLODIPINE [Concomitant]
     Dosage: 2.5 MG, UNK
  6. LOSARTAN POTASICO [Concomitant]
     Dosage: 25 MG, UNK
  7. TYLENOL-500 [Concomitant]
     Dosage: 650 MG, UNK
  8. CENTRUM SILVER [Concomitant]
  9. LABETALOL HCL [Concomitant]
     Dosage: 200 MG, UNK
  10. CHLORTHALIDONE [Concomitant]
     Dosage: 25 MG, UNK

REACTIONS (4)
  - HYPERSENSITIVITY [None]
  - UPPER RESPIRATORY TRACT CONGESTION [None]
  - SNEEZING [None]
  - NASAL CONGESTION [None]
